FAERS Safety Report 15562768 (Version 1)
Quarter: 2018Q4

REPORT INFORMATION
  Report Type: Report from Study
  Country: None (occurrence: US)
  Receive Date: 20181029
  Receipt Date: 20181029
  Transmission Date: 20190205
  Serious: Yes (Hospitalization, Other)
  Sender: FDA-Public Use
  Company Number: US-ABBVIE-18K-163-2525711-00

PATIENT
  Age: 69 Year
  Sex: Female
  Weight: 43.13 kg

DRUGS (8)
  1. HUMIRA [Suspect]
     Active Substance: ADALIMUMAB
     Route: 058
     Dates: start: 20181003
  2. LOTREL [Concomitant]
     Active Substance: AMLODIPINE BESYLATE\BENAZEPRIL HYDROCHLORIDE
     Indication: HYPERTENSION
  3. FOLIC ACID. [Concomitant]
     Active Substance: FOLIC ACID
     Indication: VITAMIN SUPPLEMENTATION
  4. METHOTREXATE. [Concomitant]
     Active Substance: METHOTREXATE
     Indication: RHEUMATOID ARTHRITIS
  5. CALCIUM [Concomitant]
     Active Substance: CALCIUM
     Indication: MINERAL SUPPLEMENTATION
  6. DILAUDID [Suspect]
     Active Substance: HYDROMORPHONE HYDROCHLORIDE
     Indication: PROCEDURAL PAIN
     Route: 065
     Dates: start: 20180911, end: 2018
  7. VITAMIN D [Concomitant]
     Active Substance: CHOLECALCIFEROL
     Indication: VITAMIN SUPPLEMENTATION
  8. HUMIRA [Suspect]
     Active Substance: ADALIMUMAB
     Indication: RHEUMATOID ARTHRITIS
     Route: 058
     Dates: start: 201806, end: 201809

REACTIONS (17)
  - Nausea [Recovered/Resolved]
  - Loss of personal independence in daily activities [Recovering/Resolving]
  - Nerve compression [Recovered/Resolved]
  - Pain in jaw [Recovering/Resolving]
  - Rash papular [Recovering/Resolving]
  - Joint swelling [Recovering/Resolving]
  - Grip strength decreased [Recovering/Resolving]
  - Facial spasm [Recovering/Resolving]
  - Procedural pain [Recovering/Resolving]
  - Ear pain [Recovering/Resolving]
  - Pain [Recovering/Resolving]
  - Trigeminal neuralgia [Recovering/Resolving]
  - Speech disorder [Recovered/Resolved]
  - Headache [Recovering/Resolving]
  - Eye pain [Recovering/Resolving]
  - Facial pain [Recovering/Resolving]
  - Arthralgia [Recovering/Resolving]

NARRATIVE: CASE EVENT DATE: 2018
